FAERS Safety Report 14977038 (Version 1)
Quarter: 2018Q2

REPORT INFORMATION
  Report Type: Spontaneous
  Country: GB (occurrence: GB)
  Receive Date: 20180606
  Receipt Date: 20180606
  Transmission Date: 20180711
  Serious: Yes (Hospitalization, Other)
  Sender: FDA-Public Use
  Company Number: GB-TEVA-2018-GB-902546

PATIENT
  Age: 66 Year
  Sex: Female
  Weight: 78 kg

DRUGS (17)
  1. WARFARIN SODIUM. [Concomitant]
     Active Substance: WARFARIN SODIUM
     Dosage: 1 DOSAGE FORMS DAILY; TAKE AT 6PM AS PER ANTICOAGULATION CLINIC
     Dates: start: 20180206
  2. PROPRANOLOL [Concomitant]
     Active Substance: PROPRANOLOL HYDROCHLORIDE
     Indication: TREMOR
     Dosage: 4 DOSAGE FORMS DAILY;
     Dates: start: 20170908
  3. ATORVASTATIN [Concomitant]
     Active Substance: ATORVASTATIN
     Dosage: 1 DOSAGE FORMS DAILY;
     Dates: start: 20171026
  4. LEVOTHYROXINE. [Concomitant]
     Active Substance: LEVOTHYROXINE
     Dosage: 1 DOSAGE FORMS DAILY; EACH MORNING
     Dates: start: 20171218
  5. SHORTEC [Concomitant]
     Dosage: EVERY FOUR HOURS
     Dates: start: 20170908
  6. LACIDIPINE [Concomitant]
     Active Substance: LACIDIPINE
     Dosage: 1 DOSAGE FORMS DAILY;
     Dates: start: 20170503
  7. CO-AMILOFRUSE [Concomitant]
     Active Substance: AMILORIDE\FUROSEMIDE
     Dosage: 1 DOSAGE FORMS DAILY; EACH MORNING.
     Dates: start: 20180206
  8. AMIODARONE [Suspect]
     Active Substance: AMIODARONE
     Dates: start: 20180209
  9. PREGABALIN. [Concomitant]
     Active Substance: PREGABALIN
     Dosage: TAKE ONE OR TWO TWICE DAILY
     Dates: start: 20171228
  10. ACETYLSALICYLIC ACID [Concomitant]
     Active Substance: ASPIRIN
     Dosage: 1 DOSAGE FORMS DAILY;
     Dates: start: 20171026, end: 20180209
  11. FERROUS FUMARATE [Concomitant]
     Active Substance: FERROUS FUMARATE
     Dosage: TWO TO THREE TIMES A DAY
     Dates: start: 20180308
  12. DULOXETINE. [Concomitant]
     Active Substance: DULOXETINE
     Dosage: 1 DOSAGE FORMS DAILY;
     Dates: start: 20171016
  13. EPILIM [Concomitant]
     Active Substance: VALPROATE SODIUM
     Dosage: 4 DOSAGE FORMS DAILY;
     Dates: start: 20170605
  14. LONGTEC [Concomitant]
     Active Substance: OXYCODONE HYDROCHLORIDE
     Dates: start: 20170922
  15. FUROSEMIDE. [Concomitant]
     Active Substance: FUROSEMIDE
     Dosage: 1 DOSAGE FORMS DAILY; TAKE AT 12
     Dates: start: 20180312, end: 20180314
  16. RANITIDINE. [Concomitant]
     Active Substance: RANITIDINE
     Dosage: 2 DOSAGE FORMS DAILY;
     Dates: start: 20180206, end: 20180306
  17. RAMIPRIL. [Concomitant]
     Active Substance: RAMIPRIL
     Dosage: 1 DOSAGE FORMS DAILY;
     Dates: start: 20170922, end: 20180209

REACTIONS (1)
  - Thyroiditis acute [Recovering/Resolving]

NARRATIVE: CASE EVENT DATE: 20180327
